FAERS Safety Report 12322562 (Version 2)
Quarter: 2017Q3

REPORT INFORMATION
  Report Type: Report from Study
  Country: US (occurrence: US)
  Receive Date: 20160502
  Receipt Date: 20170927
  Transmission Date: 20171127
  Serious: Yes (Other)
  Sender: FDA-Public Use
  Company Number: US-ROCHE-1744577

PATIENT
  Sex: Female
  Weight: 63.56 kg

DRUGS (16)
  1. HERCEPTIN [Suspect]
     Active Substance: TRASTUZUMAB
     Indication: BREAST CANCER
     Dosage: YES
     Route: 042
     Dates: start: 2012
  2. PERJETA [Suspect]
     Active Substance: PERTUZUMAB
     Route: 042
     Dates: start: 20160421, end: 20160425
  3. HERCEPTIN [Suspect]
     Active Substance: TRASTUZUMAB
     Dosage: NO
     Route: 042
     Dates: start: 2012, end: 2013
  4. NEULASTA [Concomitant]
     Active Substance: PEGFILGRASTIM
     Dosage: ONE INJECTION
     Route: 058
     Dates: start: 20160310
  5. TAXOL [Suspect]
     Active Substance: PACLITAXEL
     Indication: BREAST CANCER
     Dosage: NO
     Route: 042
     Dates: start: 2014, end: 2014
  6. AUGMENTIN [Suspect]
     Active Substance: AMOXICILLIN\CLAVULANATE POTASSIUM
     Route: 065
     Dates: start: 20170906
  7. PERJETA [Suspect]
     Active Substance: PERTUZUMAB
     Indication: BREAST CANCER
     Route: 042
     Dates: start: 20140501
  8. XARELTO [Concomitant]
     Active Substance: RIVAROXABAN
     Route: 065
     Dates: start: 20160803
  9. HERCEPTIN [Suspect]
     Active Substance: TRASTUZUMAB
     Dosage: NO
     Route: 042
     Dates: start: 2014, end: 201502
  10. KADCYLA [Suspect]
     Active Substance: ADO-TRASTUZUMAB EMTANSINE
     Indication: BREAST CANCER
     Route: 065
     Dates: start: 20160421, end: 20160825
  11. AUGMENTIN [Suspect]
     Active Substance: AMOXICILLIN\CLAVULANATE POTASSIUM
     Indication: PNEUMONIA
     Route: 065
     Dates: start: 201609
  12. NEULASTA [Concomitant]
     Active Substance: PEGFILGRASTIM
     Dosage: NO
     Route: 058
     Dates: start: 201506, end: 201510
  13. CARBOPLATIN. [Concomitant]
     Active Substance: CARBOPLATIN
     Indication: BREAST CANCER
     Dosage: NO
     Route: 042
     Dates: start: 2012, end: 2012
  14. PERJETA [Suspect]
     Active Substance: PERTUZUMAB
     Dosage: NO
     Route: 042
     Dates: start: 2014, end: 201502
  15. ABRAXANE [Concomitant]
     Active Substance: PACLITAXEL
     Indication: BREAST CANCER
     Route: 042
     Dates: start: 20150501, end: 201510
  16. TAXOL [Suspect]
     Active Substance: PACLITAXEL
     Dosage: NO
     Route: 042
     Dates: start: 2012, end: 2012

REACTIONS (17)
  - Metastases to central nervous system [Not Recovered/Not Resolved]
  - Infusion related reaction [Recovered/Resolved]
  - Dyspnoea [Recovered/Resolved]
  - White blood cell count decreased [Not Recovered/Not Resolved]
  - Cerebrovascular accident [Unknown]
  - Thrombosis [Recovered/Resolved]
  - Metastases to bone [Recovered/Resolved]
  - Metastasis [Recovered/Resolved]
  - Confusional state [Unknown]
  - Pneumonia [Recovered/Resolved]
  - Rash [Recovered/Resolved]
  - Urticaria [Recovered/Resolved]
  - Infection [Unknown]
  - Recurrent cancer [Not Recovered/Not Resolved]
  - Metastases to bone [Not Recovered/Not Resolved]
  - Metastases to lymph nodes [Recovered/Resolved]
  - Fatigue [Unknown]

NARRATIVE: CASE EVENT DATE: 2012
